FAERS Safety Report 16052246 (Version 6)
Quarter: 2019Q2

REPORT INFORMATION
  Report Type: Report from Study
  Country: KR (occurrence: KR)
  Receive Date: 20190308
  Receipt Date: 20190516
  Transmission Date: 20190711
  Serious: Yes (Hospitalization)
  Sender: FDA-Public Use
  Company Number: KR-PFIZER INC-2019083953

PATIENT
  Age: 65 Year
  Sex: Female
  Weight: 51 kg

DRUGS (41)
  1. CYTARABINE. [Suspect]
     Active Substance: CYTARABINE
     Dosage: 3.06 G, UNK (CONSOLIDATION WITH SINGLE-AGENT CYTARABINE)
     Route: 042
     Dates: start: 20190211, end: 20190408
  2. ALBUMIN [Concomitant]
     Active Substance: ALBUMIN HUMAN
     Dosage: SOLUTION, 100 ML, 1X/DAY
     Route: 042
     Dates: start: 20190221, end: 20190221
  3. ZYLORIC [Concomitant]
     Active Substance: ALLOPURINOL
     Indication: PROPHYLAXIS
     Dosage: 300 MG, 3X/DAY
     Route: 048
     Dates: start: 20190211, end: 20190215
  4. DUPHALAC [Concomitant]
     Active Substance: LACTULOSE
     Dosage: 15ML/P, 45 ML, 3X/DAY
     Route: 048
     Dates: start: 20190208, end: 20190216
  5. FLAGYL [Concomitant]
     Active Substance: METRONIDAZOLE\METRONIDAZOLE HYDROCHLORIDE
     Indication: PYREXIA
     Dosage: 1500 MG, 3X/DAY
     Route: 042
     Dates: start: 20190219, end: 20190220
  6. CEFTRIAXONE. [Concomitant]
     Active Substance: CEFTRIAXONE
     Dosage: 2 G, ONCE
     Route: 042
     Dates: start: 20190219, end: 20190219
  7. TEICOCIN [Concomitant]
     Dosage: 400 MG, DAILY
     Route: 042
     Dates: start: 20190219
  8. DAUNORUBICIN [Suspect]
     Active Substance: DAUNORUBICIN
     Indication: ACUTE MYELOID LEUKAEMIA
     Dosage: 91.8 MG, DAILY BY CONTINUOUS INFUSION (INDUCTION)
     Route: 041
     Dates: start: 20181221, end: 20181223
  9. ALBIS [Concomitant]
     Active Substance: BISMUTH SUBCITRATE\RANITIDINE HYDROCHLORIDE\SUCRALFATE
     Indication: GASTRITIS PROPHYLAXIS
     Dosage: 84 MG, 2X/DAY
     Route: 048
     Dates: start: 20190208, end: 20190216
  10. ALBIS [Concomitant]
     Active Substance: BISMUTH SUBCITRATE\RANITIDINE HYDROCHLORIDE\SUCRALFATE
     Dosage: 84 MG, 1X/DAY
     Route: 048
     Dates: start: 20190217, end: 20190217
  11. MEGESTROL ACETATE. [Concomitant]
     Active Substance: MEGESTROL ACETATE
     Indication: HYPOPHAGIA
     Dosage: SUSPENSION, 10ML/P, 20 ML, 2X/DAY
     Route: 048
     Dates: start: 20190208, end: 20190216
  12. MEVALOTIN [Concomitant]
     Active Substance: PRAVASTATIN SODIUM
     Indication: HYPERLIPIDAEMIA
     Dosage: 40 MG, DAILY
     Route: 048
     Dates: start: 20190208, end: 20190216
  13. NASEA [Concomitant]
     Active Substance: RAMOSETRON HYDROCHLORIDE
     Indication: PROPHYLAXIS OF NAUSEA AND VOMITING
     Dosage: 0.3 MG, DAILY
     Route: 042
     Dates: start: 20190211, end: 20190212
  14. CYTARABINE. [Suspect]
     Active Substance: CYTARABINE
     Indication: ACUTE MYELOID LEUKAEMIA
     Dosage: 153 MG, DAILY CONTINUOUS INFUSION (INDUCTION)
     Route: 041
     Dates: start: 20181221, end: 20181226
  15. ORODIPINE [Concomitant]
     Active Substance: AMLODIPINE OROTATE
     Indication: HYPERTENSION
     Dosage: 5 MG, DAILY
     Route: 048
     Dates: start: 20190208, end: 20190216
  16. MECKOOL [Concomitant]
     Dosage: 20 MG, 2X/DAY
     Dates: start: 20190218, end: 20190218
  17. ALBUMIN [Concomitant]
     Active Substance: ALBUMIN HUMAN
     Indication: PROPHYLAXIS
     Dosage: SOLUTION, 100 ML, 1X/DAY
     Route: 017
     Dates: start: 20190218, end: 20190219
  18. MECKOOL [Concomitant]
     Indication: PROPHYLAXIS
     Dosage: 30 MG, 3X/DAY
     Route: 042
     Dates: start: 20190211, end: 20190215
  19. NASEA OD [Concomitant]
     Active Substance: RAMOSETRON HYDROCHLORIDE
     Indication: PROPHYLAXIS OF NAUSEA AND VOMITING
     Dosage: 0.1 MG, DAILY
     Route: 048
     Dates: start: 20190213, end: 20190215
  20. CURAN [Concomitant]
     Active Substance: RANITIDINE HYDROCHLORIDE
     Indication: PROPHYLAXIS
     Dosage: 200 MG, 2X/DAY
     Route: 042
     Dates: start: 20190218
  21. POLYBUTINE [Concomitant]
     Indication: ABDOMINAL PAIN
     Dosage: 300 MG, 3X/DAY
     Route: 048
     Dates: start: 20190208, end: 20190216
  22. POLYBUTINE [Concomitant]
     Dosage: 200 MG, 2X/DAY
     Route: 048
     Dates: start: 20190217, end: 20190217
  23. GLASDEGIB [Suspect]
     Active Substance: GLASDEGIB
     Indication: ACUTE MYELOID LEUKAEMIA
     Dosage: UNK, ONCE DAILY CONTINUOUS
     Route: 048
     Dates: start: 20181221, end: 20190221
  24. SMOFKABIVEN [Concomitant]
     Active Substance: AMINO ACIDS\DEXTROSE\ELECTROLYTES NOS\SOYBEAN OIL
     Indication: HYPOPHAGIA
     Dosage: FLUID, 986 ML, DAILY
     Route: 042
     Dates: start: 20190218
  25. OCUMETHOLONE [Concomitant]
     Indication: PROPHYLAXIS
     Dosage: 0.1% 5ML, EYE DROP, 5 ML, ONCE
     Route: 047
     Dates: start: 20190211, end: 20190211
  26. URSA [Concomitant]
     Active Substance: URSODIOL
     Dosage: 200 MG, 2X/DAY
     Route: 048
     Dates: start: 20190217, end: 20190217
  27. TEICOCIN [Concomitant]
     Indication: PYREXIA
     Dosage: 1200 MG, 3X/DAY
     Route: 042
     Dates: start: 20190218, end: 20190218
  28. PHENIRAMINE [CHLORPHENAMINE MALEATE] [Concomitant]
     Dosage: 4 MG, AS NEEDED
     Route: 042
     Dates: start: 20190219, end: 20190219
  29. LASIX [Concomitant]
     Active Substance: FUROSEMIDE
     Indication: FLUID OVERLOAD
     Dosage: 20 MG, DAILY
     Route: 042
     Dates: start: 20190213, end: 20190215
  30. SYNTHROID [Concomitant]
     Active Substance: LEVOTHYROXINE SODIUM
     Indication: THYROID CANCER
     Dosage: 100 UG, DAILY
     Route: 048
     Dates: start: 20190213, end: 20190220
  31. CEFTRIAXONE. [Concomitant]
     Active Substance: CEFTRIAXONE
     Indication: PYREXIA
     Dosage: 4 G, 2X/DAY
     Route: 042
     Dates: start: 20190218, end: 20190218
  32. DUPHALAC [Concomitant]
     Active Substance: LACTULOSE
     Indication: CONSTIPATION
     Dosage: 15ML/P
  33. DUPHALAC [Concomitant]
     Active Substance: LACTULOSE
     Dosage: 15ML/P, 30 ML, 2X/DAY
     Route: 048
     Dates: start: 20190217, end: 20190217
  34. ONSERAN [Concomitant]
     Indication: PROPHYLAXIS OF NAUSEA AND VOMITING
     Dosage: 4 MG, ONCE
     Route: 042
     Dates: start: 20190218, end: 20190218
  35. TRIDOL [Concomitant]
     Active Substance: TRAMADOL HYDROCHLORIDE
     Indication: BACK PAIN
     Dosage: 100 MG, AS NEEDED
     Route: 042
     Dates: start: 20190217, end: 20190217
  36. TRIDOL [Concomitant]
     Active Substance: TRAMADOL HYDROCHLORIDE
     Indication: ABDOMINAL PAIN
     Dosage: 50 MG, AS NEEDED
     Route: 042
     Dates: start: 20190219, end: 20190220
  37. PHENIRAMINE [CHLORPHENAMINE MALEATE] [Concomitant]
     Indication: PREMEDICATION
     Dosage: 4 MG, AS NEEDED
     Route: 042
     Dates: start: 20190213, end: 20190213
  38. SANCUSO [Concomitant]
     Active Substance: GRANISETRON
     Indication: NAUSEA
     Dosage: 1 PATCH, ONCE
     Dates: start: 20190218, end: 20190218
  39. DEXAMETHASONE DISODIUM PHOSPHATE [Concomitant]
     Active Substance: DEXAMETHASONE SODIUM PHOSPHATE
     Indication: PROPHYLAXIS
     Dosage: 10 MG, 2X/DAY
     Route: 042
     Dates: start: 20190211, end: 20190215
  40. URSA [Concomitant]
     Active Substance: URSODIOL
     Indication: PROPHYLAXIS
     Dosage: 300 MG, 3X/DAY
     Route: 048
     Dates: start: 20190208, end: 20190216
  41. TAZOPERAN [Concomitant]
     Indication: PYREXIA
     Dosage: 13.5 G, 3X/DAY
     Route: 042
     Dates: start: 20190220, end: 20190221

REACTIONS (1)
  - Peritonitis [Recovered/Resolved]

NARRATIVE: CASE EVENT DATE: 20190219
